FAERS Safety Report 10543775 (Version 2)
Quarter: 2015Q1

REPORT INFORMATION
  Report Type: Spontaneous
  Country: US (occurrence: US)
  Receive Date: 20141027
  Receipt Date: 20150225
  Transmission Date: 20150720
  Serious: Yes (Hospitalization)
  Sender: FDA-Public Use
  Company Number: US-SA-2014SA142522

PATIENT
  Age: 69 Year
  Sex: Female

DRUGS (9)
  1. MULTAQ [Interacting]
     Active Substance: DRONEDARONE
     Indication: ARRHYTHMIA
     Route: 065
     Dates: start: 20140822
  2. MULTAQ [Interacting]
     Active Substance: DRONEDARONE
     Indication: ARRHYTHMIA
     Route: 065
     Dates: end: 20141014
  3. ADVAIR HFA [Interacting]
     Active Substance: FLUTICASONE PROPIONATE\SALMETEROL XINAFOATE
     Indication: ASTHMA
     Route: 065
  4. ASA [Concomitant]
     Active Substance: ASPIRIN
     Indication: CARDIAC DISORDER
  5. METOPROLOL [Concomitant]
     Active Substance: METOPROLOL
  6. DELIRESP [Concomitant]
     Dosage: QD THE 1/2 QOD
     Dates: start: 201408, end: 20150212
  7. CLARITIN [Concomitant]
     Active Substance: LORATADINE
     Indication: MULTIPLE ALLERGIES
  8. MULTAQ [Suspect]
     Active Substance: DRONEDARONE
     Indication: ATRIAL FIBRILLATION
     Route: 065
     Dates: start: 20140822
  9. MULTAQ [Interacting]
     Active Substance: DRONEDARONE
     Indication: ATRIAL FIBRILLATION
     Route: 065
     Dates: end: 20141014

REACTIONS (9)
  - Drug interaction [Unknown]
  - Hyperhidrosis [Unknown]
  - Chest pain [Unknown]
  - Asthenia [Unknown]
  - Palpitations [Unknown]
  - Feeling abnormal [Unknown]
  - Dyspnoea [Unknown]
  - Hepatic steatosis [Unknown]
  - Drug dose omission [Unknown]

NARRATIVE: CASE EVENT DATE: 20141013
